FAERS Safety Report 17215011 (Version 1)
Quarter: 2019Q4

REPORT INFORMATION
  Report Type: Spontaneous
  Country: US (occurrence: US)
  Receive Date: 20191206
  Receipt Date: 20191206
  Transmission Date: 20200122
  Serious: No
  Sender: FDA-Public Use
  Company Number: None

PATIENT

DRUGS (1)
  1. STERILE WATER [Suspect]
     Active Substance: WATER

REACTIONS (7)
  - Wrong product administered [None]
  - Haemodialysis [None]
  - Product storage error [None]
  - Acute kidney injury [None]
  - Blood pressure increased [None]
  - Product selection error [None]
  - Incorrect route of product administration [None]

NARRATIVE: CASE EVENT DATE: 2019
